FAERS Safety Report 5623540-6 (Version None)
Quarter: 2008Q1

REPORT INFORMATION
  Report Type: 
  Country: None (occurrence: None)
  Receive Date: 20080212
  Receipt Date: 20080131
  Transmission Date: 20080703
  Serious: Yes (Disabling)
  Sender: FDA-Public Use
  Company Number: JP-PFIZER INC-2008008230

PATIENT
  Age: 5 Year
  Sex: Male

DRUGS (1)
  1. HUMAN GROWTH HORMONE, RECOMBINANT [Suspect]
     Indication: GROWTH HORMONE DEFICIENCY
     Route: 058

REACTIONS (6)
  - CEREBRAL ATROPHY [None]
  - FEBRILE CONVULSION [None]
  - HEMIPLEGIA [None]
  - INFLUENZA [None]
  - NO THERAPEUTIC RESPONSE [None]
  - STATUS EPILEPTICUS [None]
